FAERS Safety Report 11699282 (Version 3)
Quarter: 2015Q4

REPORT INFORMATION
  Report Type: Spontaneous
  Country: JP (occurrence: JP)
  Receive Date: 20151104
  Receipt Date: 20151202
  Transmission Date: 20160304
  Serious: Yes (Hospitalization, Other)
  Sender: FDA-Public Use
  Company Number: PHJP2015JP019180

PATIENT
  Age: 18 Year
  Sex: Female

DRUGS (1)
  1. TEGRETOL [Suspect]
     Active Substance: CARBAMAZEPINE
     Indication: PRODUCT USED FOR UNKNOWN INDICATION
     Dosage: 27000 MG (135 TABLETS)
     Route: 065
     Dates: start: 20140826, end: 20140826

REACTIONS (7)
  - Muscular weakness [Unknown]
  - Toxicity to various agents [Recovering/Resolving]
  - Suicidal ideation [Unknown]
  - Depressed level of consciousness [Recovered/Resolved]
  - Dysthymic disorder [Unknown]
  - Intentional overdose [Unknown]
  - Vomiting [Recovered/Resolved]

NARRATIVE: CASE EVENT DATE: 20140826
